FAERS Safety Report 25104393 (Version 1)
Quarter: 2025Q1

REPORT INFORMATION
  Report Type: Spontaneous
  Country: US (occurrence: US)
  Receive Date: 20250321
  Receipt Date: 20250321
  Transmission Date: 20250408
  Serious: Yes (Other)
  Sender: BAYER HEALTHCARE PHARMACEUTICALS INC.
  Company Number: US-BAYER-2025A035542

PATIENT
  Age: 13 Year
  Sex: Male

DRUGS (2)
  1. JIVI [Suspect]
     Active Substance: DAMOCTOCOG ALFA PEGOL
     Indication: Factor VIII deficiency
     Dosage: JIVI 2000IU: INFUSE~ 4200 UNITS, TWICE A WEEK
     Route: 042
     Dates: start: 202005
  2. JIVI [Suspect]
     Active Substance: DAMOCTOCOG ALFA PEGOL
     Indication: Factor VIII deficiency
     Dates: start: 20250303, end: 20250304

REACTIONS (2)
  - Haemorrhage [None]
  - Arthralgia [None]

NARRATIVE: CASE EVENT DATE: 20250303
